FAERS Safety Report 7582254-6 (Version None)
Quarter: 2011Q2

REPORT INFORMATION
  Report Type: 
  Country: None (occurrence: None)
  Receive Date: 20110622
  Receipt Date: 20110615
  Transmission Date: 20111010
  Serious: Yes (Other)
  Sender: FDA-Public Use
  Company Number: 2011SP027893

PATIENT
  Age: 24 Year
  Sex: Female

DRUGS (2)
  1. IMPLANON [Suspect]
     Indication: CONTRACEPTION
     Dosage: 1 DF; SUBD
     Route: 059
     Dates: start: 20080806, end: 20110429
  2. IMPLANON [Suspect]

REACTIONS (2)
  - DEVICE DISLOCATION [None]
  - DEVICE BREAKAGE [None]
